FAERS Safety Report 23509486 (Version 4)
Quarter: 2024Q3

REPORT INFORMATION
  Report Type: Other
  Country: US (occurrence: US)
  Receive Date: 20240210
  Receipt Date: 20240718
  Transmission Date: 20241016
  Serious: No
  Sender: TRAVERE THERAPEUTICS
  Company Number: US-TRAVERE-2024TVT00076

PATIENT
  Age: 76 Year
  Sex: Male

DRUGS (3)
  1. FILSPARI [Suspect]
     Active Substance: SPARSENTAN
     Indication: IgA nephropathy
     Route: 048
     Dates: start: 20240114
  2. FILSPARI [Suspect]
     Active Substance: SPARSENTAN
     Indication: Haematuria
     Route: 048
     Dates: start: 202401
  3. FILSPARI [Suspect]
     Active Substance: SPARSENTAN
     Route: 048
     Dates: start: 20240128

REACTIONS (11)
  - Peripheral swelling [Recovering/Resolving]
  - Weight increased [Unknown]
  - Periorbital swelling [Unknown]
  - Headache [Recovered/Resolved]
  - Dizziness [Recovered/Resolved]
  - Oedema peripheral [Unknown]
  - Constipation [Unknown]
  - Ocular discomfort [Unknown]
  - Chest discomfort [Unknown]
  - Blood creatinine increased [None]
  - Protein total increased [None]
